FAERS Safety Report 12212412 (Version 2)
Quarter: 2016Q2

REPORT INFORMATION
  Report Type: Spontaneous
  Country: CN (occurrence: CN)
  Receive Date: 20160326
  Receipt Date: 20160401
  Transmission Date: 20160815
  Serious: Yes (Life-Threatening, Other)
  Sender: FDA-Public Use
  Company Number: CN-ACCORD-039062

PATIENT
  Age: 46 Year
  Sex: Male

DRUGS (6)
  1. GEFITINIB [Concomitant]
     Active Substance: GEFITINIB
     Indication: SMALL CELL LUNG CANCER
  2. ERLOTINIB/ERLOTINIB HYDROCHLORIDE [Concomitant]
     Indication: SMALL CELL LUNG CANCER
  3. ETOPOSIDE. [Suspect]
     Active Substance: ETOPOSIDE
     Indication: SMALL CELL LUNG CANCER
     Dosage: SINGLE CYCLE
     Route: 048
  4. PEMETREXED [Concomitant]
     Active Substance: PEMETREXED
     Indication: SMALL CELL LUNG CANCER
     Dosage: 4 CYCLES
     Dates: end: 201406
  5. METHOTREXATE [Suspect]
     Active Substance: METHOTREXATE
     Indication: SMALL CELL LUNG CANCER
     Route: 037
  6. MANNITOL. [Concomitant]
     Active Substance: MANNITOL
     Indication: INTRACRANIAL PRESSURE INCREASED
     Dosage: EVERY 6 HOURS

REACTIONS (3)
  - Gastrointestinal haemorrhage [Unknown]
  - Liver injury [Recovered/Resolved]
  - Bone marrow failure [Unknown]

NARRATIVE: CASE EVENT DATE: 20141221
